FAERS Safety Report 5210680-9 (Version None)
Quarter: 2007Q1

REPORT INFORMATION
  Report Type: 
  Country: None (occurrence: None)
  Receive Date: 20070117
  Receipt Date: 20070112
  Transmission Date: 20070707
  Serious: Yes (Hospitalization, Other)
  Sender: FDA-Public Use
  Company Number: GB-GLAXOSMITHKLINE-B0444078A

PATIENT
  Age: 60 Year
  Sex: Female
  Weight: 82.6 kg

DRUGS (7)
  1. SEROXAT [Suspect]
     Route: 048
  2. MORPHINE MST [Concomitant]
     Dosage: 320MG PER DAY
     Route: 048
  3. OMEPRAZOLE [Concomitant]
     Indication: DYSPEPSIA
     Dosage: 20MG PER DAY
     Route: 048
  4. AMITRIPTYLINE HCL [Concomitant]
     Dosage: 40MG PER DAY
     Route: 048
     Dates: start: 20060101
  5. PREGABALIN [Concomitant]
  6. METOPROLOL SUCCINATE [Concomitant]
     Indication: TACHYCARDIA
     Dosage: 50MG PER DAY
     Route: 048
  7. LEVOTHYROXINE SODIUM [Concomitant]
     Indication: HYPOTHYROIDISM
     Dosage: 100MCG PER DAY
     Route: 048

REACTIONS (6)
  - ABDOMINAL PAIN [None]
  - ANXIETY [None]
  - DIARRHOEA [None]
  - DRUG WITHDRAWAL SYNDROME [None]
  - HYPERHIDROSIS [None]
  - PHARMACEUTICAL PRODUCT COMPLAINT [None]
